FAERS Safety Report 9917072 (Version 3)
Quarter: 2014Q3

REPORT INFORMATION
  Report Type: Report from Study
  Country: US (occurrence: US)
  Receive Date: 20140221
  Receipt Date: 20140808
  Transmission Date: 20150326
  Serious: Yes (Hospitalization, Other)
  Sender: FDA-Public Use
  Company Number: US-ACTELION-A-US2012-74413

PATIENT
  Age: 49 Year
  Sex: Male

DRUGS (6)
  1. OXYGEN. [Concomitant]
     Active Substance: OXYGEN
  2. TRACLEER [Suspect]
     Active Substance: BOSENTAN\BOSENTAN MONOHYDRATE
     Indication: PULMONARY ARTERIAL HYPERTENSION
     Dosage: UNK
     Route: 048
  3. VELETRI [Suspect]
     Active Substance: EPOPROSTENOL
     Dosage: 8 NG/KG, PER MIN
     Route: 042
     Dates: start: 20121023
  4. VELETRI [Suspect]
     Active Substance: EPOPROSTENOL
     Indication: PULMONARY ARTERIAL HYPERTENSION
     Dosage: 16 NG/KG, PER MIN
     Route: 042
     Dates: start: 20121022
  5. VELETRI [Suspect]
     Active Substance: EPOPROSTENOL
     Dosage: 11 NG/KG, PER MIN
     Route: 042
     Dates: start: 20121022
  6. VELETRI [Suspect]
     Active Substance: EPOPROSTENOL
     Dosage: 19 NG/KG, UNK
     Route: 042

REACTIONS (9)
  - Catheter site pruritus [Unknown]
  - Cardiac disorder [Unknown]
  - Pulmonary oedema [Unknown]
  - Haemoglobin decreased [Unknown]
  - Packed red blood cell transfusion [Unknown]
  - Epistaxis [Unknown]
  - Concomitant disease aggravated [Unknown]
  - Chest pain [Unknown]
  - Pain in jaw [Unknown]

NARRATIVE: CASE EVENT DATE: 20121023
